FAERS Safety Report 15119455 (Version 1)
Quarter: 2018Q3

REPORT INFORMATION
  Report Type: Spontaneous
  Country: US (occurrence: US)
  Receive Date: 20180613
  Receipt Date: 20180613
  Transmission Date: 20181010
  Serious: Yes (Other)
  Sender: FDA-Public Use
  Company Number: None

PATIENT
  Age: 51 Year
  Sex: Female
  Weight: 69.75 kg

DRUGS (12)
  1. OSCAL [Concomitant]
     Active Substance: CALCIUM CARBONATE
  2. IBRANCE [Suspect]
     Active Substance: PALBOCICLIB
     Indication: BREAST CANCER
     Route: 048
     Dates: start: 20180411, end: 20180612
  3. FASLODEX [Concomitant]
     Active Substance: FULVESTRANT
  4. CYANOCOBALAMIN. [Concomitant]
     Active Substance: CYANOCOBALAMIN
  5. FISH OIL [Concomitant]
     Active Substance: FISH OIL
  6. SENNA [Concomitant]
     Active Substance: SENNA LEAF\SENNOSIDES\SENNOSIDES A AND B
  7. XGEVA [Concomitant]
     Active Substance: DENOSUMAB
  8. ALPRAZOLAM. [Concomitant]
     Active Substance: ALPRAZOLAM
  9. ANASTROZOLE. [Concomitant]
     Active Substance: ANASTROZOLE
  10. LUPRON DEPOT [Concomitant]
     Active Substance: LEUPROLIDE ACETATE
  11. DOCOSANOL [Concomitant]
     Active Substance: DOCOSANOL
  12. MELOXICAM. [Concomitant]
     Active Substance: MELOXICAM

REACTIONS (4)
  - Full blood count decreased [None]
  - Back pain [None]
  - Upper respiratory tract infection [None]
  - Constipation [None]
